FAERS Safety Report 5004991-X (Version None)
Quarter: 2006Q1

REPORT INFORMATION
  Report Type: 
  Country: None (occurrence: None)
  Receive Date: 20060323
  Receipt Date: 20060130
  Transmission Date: 20060701
  Serious: Yes (Hospitalization)
  Sender: FDA-Public Use
  Company Number: 06P-163-0323614-00

PATIENT
  Age: 54 Year
  Sex: Female
  Weight: 95.45 kg

DRUGS (4)
  1. ZEMPLAR [Suspect]
     Indication: RENAL FAILURE
     Dosage: 2 MCG, 1 IN 1 D, PER ORAL
     Route: 048
     Dates: start: 20051214, end: 20060127
  2. AMLODIPINE BESYLATE [Concomitant]
  3. IRBESARTAN [Concomitant]
  4. VITAMINS [Concomitant]

REACTIONS (6)
  - BLOOD PRESSURE INCREASED [None]
  - DIARRHOEA [None]
  - DIZZINESS [None]
  - NAUSEA [None]
  - VISION BLURRED [None]
  - VOMITING [None]
